FAERS Safety Report 7079149-3 (Version None)
Quarter: 2010Q4

REPORT INFORMATION
  Report Type: 
  Country: None (occurrence: None)
  Receive Date: 20101102
  Receipt Date: 20101029
  Transmission Date: 20110411
  Serious: Yes (Death, Congenital Anomaly)
  Sender: FDA-Public Use
  Company Number: A0889427A

PATIENT
  Sex: Female
  Weight: 2.5 kg

DRUGS (5)
  1. PAXIL [Suspect]
  2. ZOLOFT [Concomitant]
  3. PROVENTIL [Concomitant]
  4. LEVOXYL [Concomitant]
  5. PRENATAL VITAMINS [Concomitant]

REACTIONS (9)
  - ANGIOPATHY [None]
  - CELL DEATH [None]
  - DRUG EXPOSURE DURING PREGNANCY [None]
  - FOETAL GROWTH RESTRICTION [None]
  - FOETAL HEART RATE ABNORMAL [None]
  - INTRA-UTERINE DEATH [None]
  - NERVOUS SYSTEM DISORDER [None]
  - STILLBIRTH [None]
  - UMBILICAL CORD ABNORMALITY [None]
